FAERS Safety Report 7688238-1 (Version None)
Quarter: 2011Q3

REPORT INFORMATION
  Report Type: 
  Country: None (occurrence: None)
  Receive Date: 20110817
  Receipt Date: 20110711
  Transmission Date: 20111222
  Serious: No
  Sender: FDA-Public Use
  Company Number: US-GLAXOSMITHKLINE-A0936315A

PATIENT
  Age: 59 Year
  Sex: Male

DRUGS (6)
  1. NORMODYNE [Concomitant]
  2. CREON [Concomitant]
  3. VOTRIENT [Suspect]
     Indication: RENAL CELL CARCINOMA
     Dosage: 400MG TWICE PER DAY
     Route: 048
     Dates: start: 20101208
  4. DIOVAN [Concomitant]
  5. LASIX [Concomitant]
  6. CORTISONE ACETATE [Concomitant]

REACTIONS (3)
  - PROTEIN URINE PRESENT [None]
  - NEPHROTIC SYNDROME [None]
  - PROTEIN TOTAL INCREASED [None]
